FAERS Safety Report 24668555 (Version 4)
Quarter: 2025Q1

REPORT INFORMATION
  Report Type: Spontaneous
  Country: US (occurrence: US)
  Receive Date: 20241127
  Receipt Date: 20250304
  Transmission Date: 20250409
  Serious: No
  Sender: NOVARTIS
  Company Number: US-002147023-NVSC2024US226009

PATIENT
  Sex: Female

DRUGS (1)
  1. COSENTYX [Suspect]
     Active Substance: SECUKINUMAB
     Indication: Product used for unknown indication
     Dosage: 300 MG, QMO (300MG/2ML)
     Route: 065

REACTIONS (5)
  - Product dose omission issue [Unknown]
  - Device defective [Unknown]
  - Device audio issue [Unknown]
  - Needle issue [Unknown]
  - Device leakage [Unknown]
